FAERS Safety Report 20022746 (Version 2)
Quarter: 2021Q4

REPORT INFORMATION
  Report Type: Spontaneous
  Country: US (occurrence: US)
  Receive Date: 20211102
  Receipt Date: 20211109
  Transmission Date: 20220303
  Serious: Yes (Hospitalization)
  Sender: FDA-Public Use
  Company Number: US-drreddys-LIT/USA/21/0143325

PATIENT
  Age: 26 Year
  Sex: Male

DRUGS (6)
  1. DOXORUBICIN HYDROCHLORIDE [Suspect]
     Active Substance: DOXORUBICIN HYDROCHLORIDE
     Indication: Acute lymphocytic leukaemia
     Dates: start: 20201104, end: 20201107
  2. DEXAMETHASONE SODIUM PHOSPHATE [Suspect]
     Active Substance: DEXAMETHASONE SODIUM PHOSPHATE
     Indication: Acute lymphocytic leukaemia
     Dates: start: 20201104, end: 20201107
  3. CYCLOPHOSPHAMIDE [Suspect]
     Active Substance: CYCLOPHOSPHAMIDE
     Indication: Acute lymphocytic leukaemia
     Dates: start: 20201104, end: 20201107
  4. CYTARABINE [Suspect]
     Active Substance: CYTARABINE
     Indication: Acute lymphocytic leukaemia
     Dates: start: 20201104, end: 20201107
  5. METHOTREXATE [Suspect]
     Active Substance: METHOTREXATE
     Indication: Acute lymphocytic leukaemia
     Dates: start: 20201104, end: 20201107
  6. VINCRISTINE [Suspect]
     Active Substance: VINCRISTINE
     Indication: Acute lymphocytic leukaemia
     Dates: start: 20201104, end: 20201107

REACTIONS (1)
  - Infection reactivation [Recovered/Resolved]
